FAERS Safety Report 6811965-2 (Version None)
Quarter: 2010Q3

REPORT INFORMATION
  Report Type: 
  Country: None (occurrence: None)
  Receive Date: 20100701
  Receipt Date: 20100618
  Transmission Date: 20110219
  Serious: Yes (Hospitalization)
  Sender: FDA-Public Use
  Company Number: NL-MEDIMMUNE-MEDI-0009789

PATIENT
  Sex: Male
  Weight: 5.2 kg

DRUGS (2)
  1. SYNAGIS [Suspect]
     Route: 030
     Dates: start: 20090908, end: 20091006
  2. SYNAGIS [Suspect]
     Route: 030
     Dates: start: 20091103, end: 20091127

REACTIONS (3)
  - COUGH [None]
  - VIRAL INFECTION [None]
  - WHEEZING [None]
